FAERS Safety Report 17100261 (Version 6)
Quarter: 2020Q4

REPORT INFORMATION
  Report Type: Spontaneous
  Country: GR (occurrence: GR)
  Receive Date: 20191202
  Receipt Date: 20201012
  Transmission Date: 20210113
  Serious: Yes (Life-Threatening, Hospitalization, Other)
  Sender: FDA-Public Use
  Company Number: GR-UCBSA-2019049294

PATIENT
  Sex: Female
  Weight: 2.63 kg

DRUGS (3)
  1. KEPPRA [Suspect]
     Active Substance: LEVETIRACETAM
     Indication: EPILEPSY
     Dosage: UNKNOWN DOSE
     Route: 064
  2. LAMOTRIGINE. [Suspect]
     Active Substance: LAMOTRIGINE
     Indication: EPILEPSY
     Dosage: UNKNOWN DOSE
     Route: 064
  3. BETAMETHASONE. [Suspect]
     Active Substance: BETAMETHASONE
     Indication: EPILEPSY
     Dosage: 12 MILLIGRAM
     Route: 064

REACTIONS (9)
  - Maternal exposure during pregnancy [Unknown]
  - Neonatal respiratory distress syndrome [Recovered/Resolved]
  - Ascites [Recovered/Resolved]
  - Infantile apnoea [Recovered/Resolved]
  - Pleural effusion [Recovered/Resolved]
  - Cyanosis neonatal [Recovered/Resolved]
  - Hydrops foetalis [Recovered/Resolved]
  - Premature baby [Unknown]
  - Hypotonia neonatal [Recovered/Resolved]
